FAERS Safety Report 21498366 (Version 1)
Quarter: 2022Q4

REPORT INFORMATION
  Report Type: Spontaneous
  Country: US (occurrence: None)
  Receive Date: 20221021
  Receipt Date: 20221021
  Transmission Date: 20230113
  Serious: No
  Sender: FDA-Public Use
  Company Number: None

PATIENT
  Age: 52 Year
  Sex: Female
  Weight: 85.5 kg

DRUGS (1)
  1. DEXTROAMPHET SACCHARAT, AMPHET ASPARTATE, DEXTROAMPHET SULFATE AND AMP [Suspect]
     Active Substance: AMPHETAMINE ASPARTATE\AMPHETAMINE SULFATE\DEXTROAMPHETAMINE SACCHARATE\DEXTROAMPHETAMINE SULFATE
     Indication: Attention deficit hyperactivity disorder
     Dosage: FREQUENCY : 3 TIMES A DAY;?
     Route: 048
     Dates: start: 20220501

REACTIONS (10)
  - Product substitution issue [None]
  - Hypersensitivity [None]
  - Urticaria [None]
  - Physical product label issue [None]
  - Product identification number issue [None]
  - Product dispensing error [None]
  - Ocular icterus [None]
  - Hepatic failure [None]
  - Chromaturia [None]
  - Joint swelling [None]

NARRATIVE: CASE EVENT DATE: 20220522
